FAERS Safety Report 21737785 (Version 1)
Quarter: 2022Q4

REPORT INFORMATION
  Report Type: Spontaneous
  Country: US (occurrence: US)
  Receive Date: 20221216
  Receipt Date: 20221216
  Transmission Date: 20230113
  Serious: No
  Sender: FDA-Public Use
  Company Number: US-ENDO PHARMACEUTICALS INC-2022-003714

PATIENT
  Age: 51 Year
  Sex: Male
  Weight: 100.68 kg

DRUGS (9)
  1. XIAFLEX [Suspect]
     Active Substance: COLLAGENASE CLOSTRIDIUM HISTOLYTICUM
     Indication: Peyronie^s disease
     Dosage: 0.58 MG/0.25 ML, UNKNOWN (CYCLE ONE, INJECTION ONE)
     Route: 026
     Dates: start: 20220419
  2. XIAFLEX [Suspect]
     Active Substance: COLLAGENASE CLOSTRIDIUM HISTOLYTICUM
     Dosage: 0.58 MG/0.25 ML, UNKNOWN (CYCLE ONE, INJECTION TWO)
     Route: 065
     Dates: start: 20220421
  3. XIAFLEX [Suspect]
     Active Substance: COLLAGENASE CLOSTRIDIUM HISTOLYTICUM
     Dosage: 0.58 MG/0.25 ML, UNKNOWN (CYCLE TWO INJECTION ONE)
     Route: 026
     Dates: start: 20220607
  4. XIAFLEX [Suspect]
     Active Substance: COLLAGENASE CLOSTRIDIUM HISTOLYTICUM
     Dosage: 0.58 MG/0.25 ML, UNKNOWN (CYCLE TWO, INJECTION TWO)
     Route: 026
     Dates: start: 20220609, end: 20220609
  5. TADALAFIL [Concomitant]
     Active Substance: TADALAFIL
     Indication: Erectile dysfunction
     Dosage: 5 MG, DAILY
     Route: 048
  6. TADALAFIL [Concomitant]
     Active Substance: TADALAFIL
     Indication: Peyronie^s disease
  7. PENTOXIFYLLINE [Concomitant]
     Active Substance: PENTOXIFYLLINE
     Indication: Peyronie^s disease
     Dosage: 400 MG, BID
     Route: 048
  8. METFORMIN [Concomitant]
     Active Substance: METFORMIN HYDROCHLORIDE
     Indication: Hyperglycaemia
     Dosage: 500 MG, DAILY
     Route: 048
  9. LISINOPRIL [Concomitant]
     Active Substance: LISINOPRIL
     Indication: Hyperlipidaemia
     Dosage: 10 MG, DAILY
     Route: 048

REACTIONS (6)
  - Ill-defined disorder [Unknown]
  - Penile swelling [Recovering/Resolving]
  - Penile pain [Recovered/Resolved]
  - Contusion [Unknown]
  - Ecchymosis [Recovering/Resolving]
  - Drug ineffective [Not Recovered/Not Resolved]

NARRATIVE: CASE EVENT DATE: 20220401
